FAERS Safety Report 4421115-8 (Version None)
Quarter: 2004Q3

REPORT INFORMATION
  Report Type: 
  Country: None (occurrence: None)
  Receive Date: 20040707
  Receipt Date: 20040602
  Transmission Date: 20050211
  Serious: Yes (Other)
  Sender: FDA-Public Use
  Company Number: 369780

PATIENT
  Age: 12 Year
  Sex: Male

DRUGS (1)
  1. FUZEON [Suspect]
     Dosage: SUBCUTANEOUS
     Route: 058
     Dates: start: 20040415

REACTIONS (5)
  - CHILLS [None]
  - GAIT DISTURBANCE [None]
  - HYPERSOMNIA [None]
  - PAIN IN EXTREMITY [None]
  - SOMNOLENCE [None]
